FAERS Safety Report 23365288 (Version 1)
Quarter: 2024Q1

REPORT INFORMATION
  Report Type: Spontaneous
  Country: US (occurrence: US)
  Receive Date: 20240104
  Receipt Date: 20240104
  Transmission Date: 20240410
  Serious: No
  Sender: FDA-Public Use
  Company Number: US-GSK-US2023AMR181928

PATIENT
  Sex: Female

DRUGS (2)
  1. OJJAARA [Suspect]
     Active Substance: MOMELOTINIB DIHYDROCHLORIDE MONOHYDRATE
     Indication: Product used for unknown indication
     Dosage: UNK
  2. OJJAARA [Suspect]
     Active Substance: MOMELOTINIB DIHYDROCHLORIDE MONOHYDRATE
     Dosage: 100 MG

REACTIONS (3)
  - Rash [Unknown]
  - Vomiting [Unknown]
  - Pyrexia [Unknown]
